FAERS Safety Report 5010703-6 (Version None)
Quarter: 2006Q2

REPORT INFORMATION
  Report Type: 
  Country: None (occurrence: None)
  Receive Date: 20060525
  Receipt Date: 20060519
  Transmission Date: 20061013
  Serious: Yes (Hospitalization)
  Sender: FDA-Public Use
  Company Number: US-BRISTOL-MYERS SQUIBB COMPANY-13383880

PATIENT
  Sex: Male

DRUGS (1)
  1. CYTOXAN [Suspect]
     Route: 042

REACTIONS (2)
  - DRUG ADMINISTRATION ERROR [None]
  - LUNG DISORDER [None]
